FAERS Safety Report 9665164 (Version 2)
Quarter: 2013Q4

REPORT INFORMATION
  Report Type: Report from Study
  Country: AU (occurrence: AU)
  Receive Date: 20131101
  Receipt Date: 20131202
  Transmission Date: 20140711
  Serious: Yes (Other)
  Sender: FDA-Public Use
  Company Number: PHHY2013AU124039

PATIENT
  Age: 57 Year
  Sex: Male

DRUGS (3)
  1. CLOZARIL [Suspect]
     Indication: SCHIZOPHRENIA
     Dosage: 200 MG, UNK
     Route: 048
     Dates: start: 20130718
  2. CLOZARIL [Suspect]
     Dosage: 3500 MG (35 TABLETS EACH OF 100 MG), ONCE/SINGLE
     Route: 048
     Dates: start: 20131029, end: 20131029
  3. CLOZARIL [Suspect]
     Dosage: 300 MG, UNK
     Route: 048

REACTIONS (1)
  - Overdose [Recovered/Resolved]
